FAERS Safety Report 5588236-8 (Version None)
Quarter: 2008Q1

REPORT INFORMATION
  Report Type: 
  Country: None (occurrence: None)
  Receive Date: 20080109
  Receipt Date: 20080109
  Transmission Date: 20080703
  Serious: Yes (Other)
  Sender: FDA-Public Use
  Company Number: None

PATIENT
  Age: 38 Year
  Sex: Male
  Weight: 16.7831 kg

DRUGS (1)
  1. FLONASE [Suspect]
     Indication: ADENOIDAL HYPERTROPHY
     Dosage: 1 SPRAY  2X DAILY  NASAL
     Route: 045
     Dates: start: 20070724, end: 20070728

REACTIONS (2)
  - CRYING [None]
  - MOOD SWINGS [None]
